FAERS Safety Report 9640826 (Version 1)
Quarter: 2013Q4

REPORT INFORMATION
  Report Type: Spontaneous
  Country: US (occurrence: None)
  Receive Date: 20131022
  Receipt Date: 20131022
  Transmission Date: 20140711
  Serious: No
  Sender: FDA-Public Use
  Company Number: None

PATIENT
  Age: 61 None
  Sex: Male

DRUGS (1)
  1. SUTENT [Suspect]
     Indication: PRODUCT USED FOR UNKNOWN INDICATION
     Dosage: DAILY FOR 4 WEEKS, OFF 2
     Route: 048
     Dates: start: 20130905

REACTIONS (2)
  - Tongue disorder [None]
  - Fungal infection [None]
